FAERS Safety Report 25130119 (Version 1)
Quarter: 2025Q1

REPORT INFORMATION
  Report Type: Spontaneous
  Country: CN (occurrence: CN)
  Receive Date: 20250327
  Receipt Date: 20250327
  Transmission Date: 20250408
  Serious: Yes (Other)
  Sender: PFIZER
  Company Number: CN-PFIZER INC-PV202500036916

PATIENT
  Age: 84 Year
  Sex: Male
  Weight: 45.805 kg

DRUGS (1)
  1. METHYLPREDNISOLONE SODIUM SUCCINATE [Suspect]
     Active Substance: METHYLPREDNISOLONE SODIUM SUCCINATE
     Indication: Antiinflammatory therapy
     Dosage: 40 MG, 1X/DAY
     Route: 041
     Dates: start: 20250310, end: 20250310

REACTIONS (3)
  - Delirium [Recovering/Resolving]
  - Disorganised speech [Unknown]
  - Balance disorder [Unknown]

NARRATIVE: CASE EVENT DATE: 20250310
